FAERS Safety Report 21635768 (Version 1)
Quarter: 2022Q4

REPORT INFORMATION
  Report Type: Spontaneous
  Country: None (occurrence: FR)
  Receive Date: 20221123
  Receipt Date: 20221123
  Transmission Date: 20230113
  Serious: Yes (Other)
  Sender: FDA-Public Use
  Company Number: FR-Ascend Therapeutics US, LLC-2135217

PATIENT
  Age: 25 Year
  Sex: Male

DRUGS (4)
  1. ESTROGEL [Suspect]
     Active Substance: ESTRADIOL
     Indication: Product used for unknown indication
     Route: 064
     Dates: start: 1974, end: 1974
  2. ESTROGEL [Suspect]
     Active Substance: ESTRADIOL
  3. ESTRADIOL [Suspect]
     Active Substance: ESTRADIOL
     Route: 064
     Dates: start: 1974, end: 1974
  4. PROGESTERONE [Suspect]
     Active Substance: PROGESTERONE
     Route: 064
     Dates: start: 1974, end: 1974

REACTIONS (2)
  - Psychotic disorder [Unknown]
  - Mental disorder [Unknown]

NARRATIVE: CASE EVENT DATE: 19990101
